FAERS Safety Report 6693714-4 (Version None)
Quarter: 2010Q2

REPORT INFORMATION
  Report Type: 
  Country: None (occurrence: None)
  Receive Date: 20100421
  Receipt Date: 20100409
  Transmission Date: 20101027
  Serious: Yes (Hospitalization)
  Sender: FDA-Public Use
  Company Number: 2008-03418

PATIENT
  Age: 73 Year
  Sex: Male
  Weight: 105.2 kg

DRUGS (15)
  1. VELCADE [Suspect]
     Indication: MULTIPLE MYELOMA
     Dosage: 1.3 MG/M2,  IV BOLUS
     Route: 040
     Dates: start: 20080617, end: 20080829
  2. DEXAMETHASONE TAB [Suspect]
     Indication: MULTIPLE MYELOMA
     Dosage: 20 MG, ORAL
     Route: 048
     Dates: start: 20080617, end: 20080829
  3. POTASSIUM CHLORIDE [Concomitant]
  4. COUMADIN [Concomitant]
  5. FUROSEMIDE [Concomitant]
  6. ALLOPURINOL [Concomitant]
  7. HYDROCHLOROTHIAZIDE [Concomitant]
  8. GLUCOPHAGE [Concomitant]
  9. COREG [Concomitant]
  10. HUMALOG [Concomitant]
  11. LANTUS [Concomitant]
  12. VANADYL SULFATE [Concomitant]
  13. CHROMIUM PICOLINATE (CHROMIUM PICOLINATE) [Concomitant]
  14. BENICAR [Concomitant]
  15. MULTIVITAMIN [Concomitant]

REACTIONS (17)
  - BRONCHITIS [None]
  - CELLULITIS [None]
  - CHRONIC OBSTRUCTIVE PULMONARY DISEASE [None]
  - CLOSTRIDIUM TEST POSITIVE [None]
  - COUGH [None]
  - DIARRHOEA [None]
  - DISCOMFORT [None]
  - DYSPNOEA [None]
  - ERYTHEMA [None]
  - FEELING HOT [None]
  - HAEMOGLOBIN DECREASED [None]
  - INTERNATIONAL NORMALISED RATIO INCREASED [None]
  - MOVEMENT DISORDER [None]
  - OEDEMA [None]
  - PAIN [None]
  - SWELLING [None]
  - WHEEZING [None]
